FAERS Safety Report 6813998-9 (Version None)
Quarter: 2010Q3

REPORT INFORMATION
  Report Type: 
  Country: None (occurrence: None)
  Receive Date: 20100702
  Receipt Date: 20100624
  Transmission Date: 20110219
  Serious: Yes (Hospitalization, Disabling)
  Sender: FDA-Public Use
  Company Number: JP-ASTRAZENECA-2010SE10817

PATIENT
  Age: 27570 Day
  Sex: Female
  Weight: 35 kg

DRUGS (6)
  1. IRESSA [Suspect]
     Indication: LUNG ADENOCARCINOMA
     Route: 048
     Dates: start: 20091007, end: 20100315
  2. ALMETA [Concomitant]
     Indication: RASH
     Dosage: OPTIMAL DOSE EVERY DAY.
     Route: 003
     Dates: start: 20091027
  3. HYPEN [Concomitant]
     Indication: BACK PAIN
     Route: 048
     Dates: start: 20091124
  4. MUCOSTA [Concomitant]
     Indication: GASTRIC ULCER
     Route: 048
     Dates: start: 20091124
  5. MILTAX [Concomitant]
     Indication: BACK PAIN
     Route: 062
     Dates: start: 20091124
  6. HIRUDOID [Concomitant]
     Indication: RASH
     Route: 003
     Dates: start: 20091124

REACTIONS (2)
  - RASH [None]
  - SKIN ULCER [None]
